FAERS Safety Report 9445187 (Version 1)
Quarter: 2013Q3

REPORT INFORMATION
  Report Type: Spontaneous
  Country: US (occurrence: US)
  Receive Date: 20130807
  Receipt Date: 20130807
  Transmission Date: 20140515
  Serious: Yes (Other)
  Sender: FDA-Public Use
  Company Number: US-GLAXOSMITHKLINE-A1036505A

PATIENT
  Age: 63 Year
  Sex: Female
  Weight: 68.2 kg

DRUGS (6)
  1. TYKERB [Suspect]
     Indication: NEOPLASM MALIGNANT
     Dosage: 1250MG PER DAY
     Route: 048
     Dates: start: 20110304, end: 20130724
  2. XELODA [Concomitant]
  3. DEXAMETHASONE [Concomitant]
  4. PREVACID [Concomitant]
  5. HYDROCODONE/ APAP [Concomitant]
  6. CELEXA [Concomitant]

REACTIONS (1)
  - Malignant neoplasm progression [Unknown]
